FAERS Safety Report 9228329 (Version 2)
Quarter: 2013Q2

REPORT INFORMATION
  Report Type: Report from Study
  Country: US (occurrence: US)
  Receive Date: 20130412
  Receipt Date: 20130509
  Transmission Date: 20140414
  Serious: Yes (Death, Other)
  Sender: FDA-Public Use
  Company Number: US-ROCHE-1209945

PATIENT
  Sex: 0

DRUGS (4)
  1. ALTEPLASE [Suspect]
     Indication: ISCHAEMIC STROKE
     Dosage: LOW DOSE
     Route: 042
  2. ALTEPLASE [Suspect]
     Dosage: STANDARD DOSE
     Route: 042
  3. ALTEPLASE [Suspect]
     Route: 013
  4. HEPARIN [Suspect]
     Indication: ISCHAEMIC STROKE
     Route: 042

REACTIONS (4)
  - Death [Fatal]
  - Drug ineffective [Unknown]
  - Haemorrhage intracranial [Unknown]
  - Subarachnoid haemorrhage [Unknown]
